FAERS Safety Report 8307165-X (Version None)
Quarter: 2012Q2

REPORT INFORMATION
  Report Type: 
  Country: None (occurrence: None)
  Receive Date: 20120424
  Receipt Date: 20120420
  Transmission Date: 20120825
  Serious: Yes (Other)
  Sender: FDA-Public Use
  Company Number: PHHY2011NL36815

PATIENT
  Sex: Male

DRUGS (18)
  1. ZOMETA [Suspect]
     Indication: PROSTATE CANCER METASTATIC
     Dosage: 4 MG/5 ML,ONCE EVERY 28 DAYS
     Route: 042
     Dates: start: 20110401
  2. ZOMETA [Suspect]
     Dosage: 4 MG/5 ML,ONCE EVERY 28 DAYS
     Route: 042
     Dates: start: 20111017
  3. ZOMETA [Suspect]
     Dosage: 4 MG/ 100 ML ONCE PER 28 DAYS
     Dates: start: 20120305
  4. ZOMETA [Suspect]
     Dosage: 4 MG/5 ML,ONCE EVERY 28 DAYS
     Route: 042
     Dates: start: 20110919
  5. PREDNISOLONE [Concomitant]
  6. ACETAMINOPHEN [Concomitant]
  7. ZOMETA [Suspect]
     Dosage: 4 MG/5 ML,ONCE EVERY 28 DAYS
     Route: 042
     Dates: start: 20111114
  8. OMEPRAZOLE [Concomitant]
  9. NIZORAL [Concomitant]
     Dosage: 200 MG, DAILY
     Route: 048
  10. ZOMETA [Suspect]
     Dosage: 4 MG/ 100 ML ONCE PER 28 DAYS
     Dates: start: 20120206
  11. SLOW-K [Concomitant]
  12. ZOLPIDEM TARTRATE [Concomitant]
  13. NIZORAL [Concomitant]
     Dates: start: 20111027
  14. ZOMETA [Suspect]
     Dosage: 4 MG/5 ML,ONCE EVERY 28 DAYS
     Route: 042
     Dates: start: 20110429
  15. ZOMETA [Suspect]
     Dosage: UNK UKN, UNK
     Route: 042
     Dates: start: 20120402, end: 20120402
  16. ZOMETA [Suspect]
     Dosage: 4 MG/5 ML,ONCE EVERY 28 DAYS
     Route: 042
     Dates: start: 20110817
  17. LACTULOSE [Concomitant]
  18. IBUPROFEN [Concomitant]

REACTIONS (10)
  - INFLUENZA LIKE ILLNESS [None]
  - PROSTATIC SPECIFIC ANTIGEN INCREASED [None]
  - WEIGHT DECREASED [None]
  - FATIGUE [None]
  - PNEUMONIA [None]
  - HAEMOGLOBIN DECREASED [None]
  - PYREXIA [None]
  - TERMINAL STATE [None]
  - LUNG DISORDER [None]
  - BLOOD POTASSIUM DECREASED [None]
